FAERS Safety Report 23941132 (Version 2)
Quarter: 2024Q3

REPORT INFORMATION
  Report Type: Spontaneous
  Country: FR (occurrence: FR)
  Receive Date: 20240605
  Receipt Date: 20240704
  Transmission Date: 20241016
  Serious: Yes (Hospitalization, Other)
  Sender: PFIZER
  Company Number: FR-ROCHE-3568814

PATIENT
  Age: 57 Year
  Sex: Male
  Weight: 74.5 kg

DRUGS (19)
  1. DOXORUBICIN HYDROCHLORIDE [Suspect]
     Active Substance: DOXORUBICIN HYDROCHLORIDE
     Indication: Richter^s syndrome
     Dosage: UNK
     Route: 065
     Dates: start: 20240330, end: 20240403
  2. DOXORUBICIN HYDROCHLORIDE [Suspect]
     Active Substance: DOXORUBICIN HYDROCHLORIDE
     Dosage: UNK
     Route: 065
     Dates: start: 20240422, end: 20240426
  3. RITUXIMAB [Suspect]
     Active Substance: RITUXIMAB
     Indication: Richter^s syndrome
     Dosage: UNK
     Route: 065
     Dates: start: 20240330, end: 20240403
  4. VINCRISTINE SULFATE [Suspect]
     Active Substance: VINCRISTINE SULFATE
     Indication: Richter^s syndrome
     Dosage: UNK
     Route: 065
     Dates: start: 20240422, end: 20240426
  5. VINCRISTINE SULFATE [Suspect]
     Active Substance: VINCRISTINE SULFATE
     Dosage: UNK
     Route: 065
     Dates: start: 20240330, end: 20240403
  6. PREDNISONE [Suspect]
     Active Substance: PREDNISONE
     Indication: Richter^s syndrome
     Dosage: UNK
     Dates: start: 20240330, end: 20240403
  7. PREDNISONE [Suspect]
     Active Substance: PREDNISONE
     Dosage: UNK
     Dates: start: 20240422, end: 20240426
  8. CYCLOPHOSPHAMIDE [Suspect]
     Active Substance: CYCLOPHOSPHAMIDE
     Indication: Richter^s syndrome
     Dosage: UNK
     Route: 065
     Dates: start: 20240330, end: 20240403
  9. CYCLOPHOSPHAMIDE [Suspect]
     Active Substance: CYCLOPHOSPHAMIDE
     Dosage: UNK
     Route: 065
     Dates: start: 20240422, end: 20240426
  10. OBINUTUZUMAB [Suspect]
     Active Substance: OBINUTUZUMAB
     Indication: Richter^s syndrome
     Dosage: UNK
     Route: 042
     Dates: start: 20240422
  11. GLOFITAMAB [Suspect]
     Active Substance: GLOFITAMAB
     Indication: Richter^s syndrome
     Dosage: INFUSION
     Route: 042
     Dates: start: 20240501
  12. GLOFITAMAB [Suspect]
     Active Substance: GLOFITAMAB
     Route: 042
  13. BACTRIM [Concomitant]
     Active Substance: SULFAMETHOXAZOLE\TRIMETHOPRIM
     Dosage: UNK
  14. EMEND [Concomitant]
     Active Substance: APREPITANT
     Dosage: UNK
  15. SOTALOL [Concomitant]
     Active Substance: SOTALOL
     Dosage: UNK
  16. SODIUM BICARBONATE [Concomitant]
     Active Substance: SODIUM BICARBONATE
     Dosage: UNK
  17. ONDANSETRON [Concomitant]
     Active Substance: ONDANSETRON
     Dosage: UNK
  18. VALACYCLOVIR HYDROCHLORIDE [Concomitant]
     Active Substance: VALACYCLOVIR HYDROCHLORIDE
     Dosage: UNK
  19. ONDANSETRON [Concomitant]
     Active Substance: ONDANSETRON

REACTIONS (1)
  - Cytokine release syndrome [Not Recovered/Not Resolved]

NARRATIVE: CASE EVENT DATE: 20240501
